FAERS Safety Report 22029731 (Version 1)
Quarter: 2023Q1

REPORT INFORMATION
  Report Type: Spontaneous
  Country: US (occurrence: None)
  Receive Date: 20230222
  Receipt Date: 20230222
  Transmission Date: 20230417
  Serious: Yes (Other)
  Sender: FDA-Public Use
  Company Number: None

PATIENT
  Age: 70 Year
  Sex: Male

DRUGS (2)
  1. MOLNUPIRAVIR [Suspect]
     Active Substance: MOLNUPIRAVIR
     Indication: COVID-19
     Dosage: FREQUENCY : TWICE A DAY;?
     Route: 048
     Dates: start: 20230221, end: 20230221
  2. Chaga extract [Concomitant]

REACTIONS (4)
  - Eye swelling [None]
  - Bronchospasm [None]
  - Throat tightness [None]
  - Nasal congestion [None]

NARRATIVE: CASE EVENT DATE: 20230221
